FAERS Safety Report 7942521-0 (Version None)
Quarter: 2011Q4

REPORT INFORMATION
  Report Type: 
  Country: None (occurrence: None)
  Receive Date: 20111128
  Receipt Date: 20111107
  Transmission Date: 20120403
  Serious: Yes (Other)
  Sender: FDA-Public Use
  Company Number: JP-GLAXOSMITHKLINE-B0761862A

PATIENT
  Sex: Male

DRUGS (1)
  1. PAXIL [Suspect]
     Indication: DIZZINESS
     Dosage: 20MG PER DAY
     Route: 048
     Dates: start: 20111104

REACTIONS (2)
  - PARKINSONISM [None]
  - TREMOR [None]
